FAERS Safety Report 14458631 (Version 2)
Quarter: 2018Q1

REPORT INFORMATION
  Report Type: Spontaneous
  Country: US (occurrence: US)
  Receive Date: 20180130
  Receipt Date: 20180320
  Transmission Date: 20180509
  Serious: Yes (Other)
  Sender: FDA-Public Use
  Company Number: US-NOVOPROD-582470

PATIENT
  Sex: Female

DRUGS (1)
  1. TRESIBA [Suspect]
     Active Substance: INSULIN DEGLUDEC
     Indication: INSULIN RESISTANT DIABETES
     Dosage: 90 UNITS PM AND 45 UNITS AM
     Route: 058

REACTIONS (2)
  - Product use issue [Unknown]
  - Cataract operation [Unknown]

NARRATIVE: CASE EVENT DATE: 20180119
